FAERS Safety Report 16330207 (Version 1)
Quarter: 2019Q2

REPORT INFORMATION
  Report Type: Spontaneous
  Country: ZA (occurrence: ZA)
  Receive Date: 20190520
  Receipt Date: 20190520
  Transmission Date: 20190711
  Serious: Yes (Life-Threatening, Hospitalization, Other)
  Sender: FDA-Public Use
  Company Number: ZA-ACCORD-127817

PATIENT
  Age: 12 Year
  Sex: Female

DRUGS (4)
  1. ATENOLOL/ATENOLOL HYDROCHLORIDE [Concomitant]
     Indication: HYPERTENSION
  2. TACROLIMUS. [Suspect]
     Active Substance: TACROLIMUS
     Indication: IMMUNOSUPPRESSANT DRUG THERAPY
  3. PREDNISONE. [Suspect]
     Active Substance: PREDNISONE
     Indication: IMMUNOSUPPRESSANT DRUG THERAPY
     Route: 048
  4. SULFAMETHOXAZOLE/TRIMETHOPRIM [Concomitant]

REACTIONS (2)
  - Tuberculosis [Recovered/Resolved]
  - Chylothorax [Recovered/Resolved]
